FAERS Safety Report 14490429 (Version 4)
Quarter: 2018Q4

REPORT INFORMATION
  Report Type: Spontaneous
  Country: US (occurrence: US)
  Receive Date: 20180206
  Receipt Date: 20181025
  Transmission Date: 20190204
  Serious: Yes (Other)
  Sender: FDA-Public Use
  Company Number: US-CIPLA LTD.-2017US12097

PATIENT

DRUGS (3)
  1. CELECOXIB. [Interacting]
     Active Substance: CELECOXIB
     Dosage: UNK
  2. CAPECITABINE. [Interacting]
     Active Substance: CAPECITABINE
     Indication: THYMOMA
     Dosage: 1000 MG/M, BID, (ROUNDED TO THE NEAREST 500 MG) DAY 1 TO DAY 14
     Route: 048
  3. CELECOXIB. [Suspect]
     Active Substance: CELECOXIB
     Indication: THYMOMA
     Dosage: 200 MG, BID, DAY 1 TO DAY 14
     Route: 048

REACTIONS (2)
  - Drug interaction [Unknown]
  - Malignant neoplasm progression [Unknown]
